FAERS Safety Report 5250600-4 (Version None)
Quarter: 2007Q1

REPORT INFORMATION
  Report Type: 
  Country: None (occurrence: None)
  Receive Date: 20070228
  Receipt Date: 20060622
  Transmission Date: 20070707
  Serious: Yes (Life-Threatening, Hospitalization, Disabling, Other)
  Sender: FDA-Public Use
  Company Number: US-GLAXOSMITHKLINE-A0607906A

PATIENT
  Age: 32 Year
  Sex: Female

DRUGS (2)
  1. LAMICTAL [Suspect]
     Indication: BIPOLAR DISORDER
     Dosage: 50MG PER DAY
     Route: 048
     Dates: start: 20060513, end: 20060601
  2. LITHIUM CARBONATE [Concomitant]
     Indication: BIPOLAR DISORDER
     Dosage: 450MG TWICE PER DAY
     Dates: start: 20060214, end: 20060601

REACTIONS (5)
  - DYSPHAGIA [None]
  - MOUTH ULCERATION [None]
  - SKIN ULCER [None]
  - STEVENS-JOHNSON SYNDROME [None]
  - VAGINAL ULCERATION [None]
